FAERS Safety Report 7796940-6 (Version None)
Quarter: 2011Q4

REPORT INFORMATION
  Report Type: 
  Country: None (occurrence: None)
  Receive Date: 20111003
  Receipt Date: 20110922
  Transmission Date: 20120403
  Serious: Yes (Life-Threatening, Hospitalization, Disabling, Other)
  Sender: FDA-Public Use
  Company Number: 2011P1009050

PATIENT
  Age: 55 Year
  Sex: Female
  Weight: 127.0072 kg

DRUGS (1)
  1. METHENAMINE HIPPURATE [Suspect]
     Indication: PROPHYLAXIS URINARY TRACT INFECTION
     Dosage: 1 GRAM;QD;PO
     Route: 048
     Dates: start: 20040101

REACTIONS (17)
  - CONDITION AGGRAVATED [None]
  - PULMONARY HYPERTENSION [None]
  - WEIGHT DECREASED [None]
  - INTERVERTEBRAL DISC PROTRUSION [None]
  - INFLAMMATION [None]
  - NASOPHARYNGITIS [None]
  - RENAL DISORDER [None]
  - URINARY TRACT INFECTION [None]
  - CARDIAC DISORDER [None]
  - RENAL FAILURE [None]
  - SINUS DISORDER [None]
  - SWELLING [None]
  - BLOOD POTASSIUM DECREASED [None]
  - CONSTIPATION [None]
  - COELIAC DISEASE [None]
  - SUICIDAL IDEATION [None]
  - MUSCULAR DYSTROPHY [None]
